FAERS Safety Report 4263746-4 (Version None)
Quarter: 2004Q1

REPORT INFORMATION
  Report Type: 
  Country: None (occurrence: None)
  Receive Date: 20040102
  Receipt Date: 20031219
  Transmission Date: 20041129
  Serious: Yes (Hospitalization)
  Sender: FDA-Public Use
  Company Number: DE_030611567

PATIENT
  Age: 27 Year
  Sex: Male

DRUGS (3)
  1. ZYPREXA [Suspect]
     Indication: SCHIZOPHRENIA, DISORGANISED TYPE
     Dosage: 15 MG/DAY
     Dates: start: 20021101, end: 20030701
  2. NIZAX (NIZATIDINE) [Suspect]
     Dates: end: 20030101
  3. RISPERDAL [Concomitant]

REACTIONS (4)
  - PULMONARY EMBOLISM [None]
  - RESPIRATORY DISORDER [None]
  - THROMBOSIS [None]
  - WEIGHT DECREASED [None]
